FAERS Safety Report 14479883 (Version 1)
Quarter: 2018Q1

REPORT INFORMATION
  Report Type: Spontaneous
  Country: US (occurrence: US)
  Receive Date: 20180202
  Receipt Date: 20180202
  Transmission Date: 20180509
  Serious: Yes (Hospitalization)
  Sender: FDA-Public Use
  Company Number: US-THE MEDICINES COMPANY-US-MDCO-17-00540

PATIENT
  Age: 48 Year
  Sex: Male

DRUGS (2)
  1. ORBACTIV [Suspect]
     Active Substance: ORITAVANCIN
     Indication: ENTEROCOCCAL INFECTION
     Dosage: NOT PROVIDED
     Route: 041
     Dates: start: 20171120, end: 20171120
  2. ORBACTIV [Suspect]
     Active Substance: ORITAVANCIN
     Route: 041
     Dates: start: 20171107, end: 20171107

REACTIONS (4)
  - Pyrexia [Recovered/Resolved]
  - Chills [Recovered/Resolved]
  - Drug ineffective [Recovering/Resolving]
  - Palpitations [Recovered/Resolved]

NARRATIVE: CASE EVENT DATE: 201711
